FAERS Safety Report 10253332 (Version 1)
Quarter: 2014Q2

REPORT INFORMATION
  Report Type: Spontaneous
  Country: US (occurrence: US)
  Receive Date: 20140623
  Receipt Date: 20140623
  Transmission Date: 20141212
  Serious: No
  Sender: FDA-Public Use
  Company Number: US-SHIONOGI, INC-2014000359

PATIENT
  Sex: Female

DRUGS (3)
  1. OSPHENA [Suspect]
     Indication: DYSPAREUNIA
     Dosage: UNK
     Route: 065
  2. OSPHENA [Suspect]
     Indication: VULVOVAGINAL DRYNESS
  3. MYRBETRIQ [Concomitant]
     Indication: HYPERTONIC BLADDER
     Dosage: UNK
     Route: 065

REACTIONS (2)
  - Therapeutic response changed [Unknown]
  - No adverse event [Unknown]
